FAERS Safety Report 4280074-1 (Version None)
Quarter: 2004Q1

REPORT INFORMATION
  Report Type: 
  Country: None (occurrence: None)
  Receive Date: 20040123
  Receipt Date: 20040114
  Transmission Date: 20041129
  Serious: Yes (Hospitalization)
  Sender: FDA-Public Use
  Company Number: 2004PK00086

PATIENT
  Age: 82 Year
  Sex: Female
  Weight: 62 kg

DRUGS (6)
  1. METOPROLOL SUCCINATE [Suspect]
     Indication: HYPERTENSION
     Dosage: 47.5 MG BID PO
     Route: 048
     Dates: start: 20010101
  2. BENALAPRIL [Suspect]
     Indication: HYPERTENSION
     Dosage: 5 MG DAILY PO
     Route: 048
     Dates: start: 20010101
  3. MANINIL 3.5 [Suspect]
     Indication: DIABETES MELLITUS NON-INSULIN-DEPENDENT
     Dosage: 10.5 MG DAILY PO
     Route: 048
     Dates: start: 20000101, end: 20030828
  4. ASPIRIN [Concomitant]
  5. DIURAPID [Concomitant]
  6. NORVASC [Concomitant]

REACTIONS (3)
  - ANOREXIA [None]
  - DRUG INTERACTION [None]
  - SHOCK HYPOGLYCAEMIC [None]
